FAERS Safety Report 20119208 (Version 1)
Quarter: 2021Q4

REPORT INFORMATION
  Report Type: Spontaneous
  Country: US (occurrence: None)
  Receive Date: 20211125
  Receipt Date: 20211125
  Transmission Date: 20220303
  Serious: Yes (Other)
  Sender: FDA-Public Use
  Company Number: None

PATIENT
  Age: 51 Year
  Sex: Female

DRUGS (1)
  1. METHOCARBAMOL [Suspect]
     Active Substance: METHOCARBAMOL
     Indication: Neuralgia
     Dosage: OTHER QUANTITY : 1 TABLET(S);?FREQUENCY : TWICE A DAY;?
     Route: 048
     Dates: start: 20211124, end: 20211125

REACTIONS (6)
  - Blood pressure increased [None]
  - Headache [None]
  - Neck pain [None]
  - Arthralgia [None]
  - Pain in jaw [None]
  - Visual impairment [None]

NARRATIVE: CASE EVENT DATE: 20211125
